FAERS Safety Report 9975167 (Version 1)
Quarter: 2014Q1

REPORT INFORMATION
  Report Type: Report from Study
  Country: US (occurrence: US)
  Receive Date: 20140306
  Receipt Date: 20140306
  Transmission Date: 20141002
  Serious: Yes (Hospitalization)
  Sender: FDA-Public Use
  Company Number: US-ABBVIE-13P-163-1160399-00

PATIENT
  Age: 65 Year
  Sex: Female
  Weight: 55.84 kg

DRUGS (21)
  1. HUMIRA [Suspect]
     Indication: PSORIATIC ARTHROPATHY
     Dates: start: 201305, end: 201306
  2. HUMIRA [Suspect]
     Dates: start: 201307
  3. SYNTHROID [Concomitant]
     Indication: HYPOTHYROIDISM
  4. LISINOPRIL [Concomitant]
     Indication: HYPERTENSION
  5. WELLBUTRIN [Concomitant]
     Indication: DEPRESSION
  6. PREVACID [Concomitant]
     Indication: GASTROOESOPHAGEAL REFLUX DISEASE
  7. BONIVA [Concomitant]
     Indication: OSTEOPOROSIS
  8. METHOTREXATE [Concomitant]
     Indication: PSORIATIC ARTHROPATHY
  9. FOLIC ACID [Concomitant]
     Indication: VITAMIN SUPPLEMENTATION
  10. MULTIVITAMIN [Concomitant]
     Indication: VITAMIN SUPPLEMENTATION
  11. CALCIUM [Concomitant]
     Indication: MINERAL SUPPLEMENTATION
  12. VITAMIN B [Concomitant]
     Indication: VITAMIN SUPPLEMENTATION
  13. VITAMIN C [Concomitant]
     Indication: VITAMIN SUPPLEMENTATION
  14. VITAMIN E [Concomitant]
     Indication: VITAMIN SUPPLEMENTATION
  15. VITAMIN D3 [Concomitant]
     Indication: VITAMIN SUPPLEMENTATION
  16. FISH OIL [Concomitant]
     Indication: SUPPLEMENTATION THERAPY
  17. GINSENG NOS [Concomitant]
     Indication: SUPPLEMENTATION THERAPY
  18. GINKO BILOBA [Concomitant]
     Indication: SUPPLEMENTATION THERAPY
  19. ACIDOPHILUS [Concomitant]
     Indication: SUPPLEMENTATION THERAPY
  20. IRON [Concomitant]
     Indication: MINERAL SUPPLEMENTATION
  21. ASPIRIN [Concomitant]
     Indication: THROMBOSIS PROPHYLAXIS
     Dates: start: 201310

REACTIONS (3)
  - Fall [Not Recovered/Not Resolved]
  - Hip fracture [Recovering/Resolving]
  - Drug effect incomplete [Recovered/Resolved]
